FAERS Safety Report 14149419 (Version 1)
Quarter: 2017Q4

REPORT INFORMATION
  Report Type: Spontaneous
  Country: US (occurrence: US)
  Receive Date: 20171101
  Receipt Date: 20171101
  Transmission Date: 20180321
  Serious: No
  Sender: FDA-Public Use
  Company Number: US-SHIRE-US201719184

PATIENT
  Age: 91 Year
  Sex: Female

DRUGS (1)
  1. XIIDRA [Suspect]
     Active Substance: LIFITEGRAST
     Indication: DRY EYE

REACTIONS (2)
  - Instillation site pain [Recovered/Resolved]
  - Instillation site discomfort [Unknown]

NARRATIVE: CASE EVENT DATE: 20170801
